FAERS Safety Report 5931856-9 (Version None)
Quarter: 2008Q4

REPORT INFORMATION
  Report Type: 
  Country: None (occurrence: None)
  Receive Date: 20081022
  Receipt Date: 20081008
  Transmission Date: 20090506
  Serious: Yes (Other)
  Sender: FDA-Public Use
  Company Number: 2008SP020436

PATIENT
  Age: 8 Year
  Sex: Female

DRUGS (3)
  1. AERIUS (DESLORATADINE) (DESLORATADINE) (5 MG) [Suspect]
     Indication: DRUG USE FOR UNKNOWN INDICATION
     Dosage: 5 MG; QD; PO, 2.5 MG; QD; PO
     Route: 048
     Dates: start: 20080401, end: 20080501
  2. OPATANOL (OLOPATADINE HYDROCHLORIDE) [Concomitant]
  3. RHINOCORT [Concomitant]

REACTIONS (1)
  - AGGRESSION [None]
